FAERS Safety Report 23557345 (Version 1)
Quarter: 2024Q1

REPORT INFORMATION
  Report Type: Spontaneous
  Country: US (occurrence: US)
  Receive Date: 20240223
  Receipt Date: 20240223
  Transmission Date: 20240409
  Serious: Yes (Hospitalization)
  Sender: FDA-Public Use
  Company Number: US-TEVA-VS-3158839

PATIENT
  Age: 16 Year
  Sex: Male
  Weight: 98.8 kg

DRUGS (11)
  1. METHOTREXATE [Suspect]
     Active Substance: METHOTREXATE
     Indication: Acute lymphocytic leukaemia
     Route: 048
     Dates: start: 20220118, end: 20231208
  2. METHOTREXATE [Suspect]
     Active Substance: METHOTREXATE
     Indication: Acute lymphocytic leukaemia
     Route: 048
     Dates: start: 20231219, end: 20240118
  3. RUXOLITINIB [Suspect]
     Active Substance: RUXOLITINIB
     Indication: Acute lymphocytic leukaemia
     Dosage: D1-D15, D29-43, D57-71
     Route: 048
     Dates: start: 20220118
  4. RUXOLITINIB [Suspect]
     Active Substance: RUXOLITINIB
     Indication: Acute lymphocytic leukaemia
     Dosage: D1-D15, D29-43, D57-71
     Route: 048
     Dates: start: 20231219, end: 20240118
  5. VINCRISTINE [Suspect]
     Active Substance: VINCRISTINE
     Indication: Acute lymphocytic leukaemia
     Dosage: ONCE
     Route: 042
     Dates: start: 20230201, end: 20240118
  6. VINCRISTINE [Suspect]
     Active Substance: VINCRISTINE
     Indication: Acute lymphocytic leukaemia
     Dosage: ONCE
     Route: 042
     Dates: start: 20240119
  7. GABAPENTIN [Concomitant]
     Active Substance: GABAPENTIN
  8. MERCAPTOPURINE [Suspect]
     Active Substance: MERCAPTOPURINE
     Indication: Acute lymphocytic leukaemia
     Dosage: MONDAY-THURSDAY, 125 MG DAILY FRIDAY-SUNDAY; ORAL USE
     Route: 048
     Dates: start: 20220118, end: 20231208
  9. MERCAPTOPURINE [Suspect]
     Active Substance: MERCAPTOPURINE
     Indication: Acute lymphocytic leukaemia
     Dosage: MONDAY-THURSDAY, 125 MG DAILY FRIDAY-SUNDAY; ORAL USE
     Route: 048
     Dates: start: 20231219, end: 20240118
  10. PREDNISONE [Suspect]
     Active Substance: PREDNISONE
     Indication: Acute lymphocytic leukaemia
     Dosage: 45 MG DAILY IN AM, 45 MG DAILY IN PM
     Route: 048
     Dates: start: 20221107, end: 20231219
  11. PREDNISONE [Suspect]
     Active Substance: PREDNISONE
     Indication: Acute lymphocytic leukaemia
     Dosage: 45 MG DAILY IN AM, 45 MG DAILY IN PM
     Route: 048
     Dates: start: 20240119

REACTIONS (7)
  - Hyperuricaemia [Recovered/Resolved]
  - Headache [Recovered/Resolved]
  - Pyrexia [Recovered/Resolved]
  - Meningitis cryptococcal [Recovering/Resolving]
  - Dehydration [Recovered/Resolved]
  - Cough [Recovered/Resolved]
  - Neutrophil count decreased [Recovered/Resolved]

NARRATIVE: CASE EVENT DATE: 20231201
